APPROVED DRUG PRODUCT: BACLOFEN
Active Ingredient: BACLOFEN
Strength: 10MG
Dosage Form/Route: TABLET;ORAL
Application: A073092 | Product #001
Applicant: WATSON LABORATORIES INC
Approved: Jan 28, 1994 | RLD: No | RS: No | Type: DISCN